FAERS Safety Report 6463957-3 (Version None)
Quarter: 2009Q4

REPORT INFORMATION
  Report Type: 
  Country: None (occurrence: None)
  Receive Date: 20091201
  Receipt Date: 20091120
  Transmission Date: 20100525
  Serious: Yes (Other)
  Sender: FDA-Public Use
  Company Number: CA-JNJFOC-20091107028

PATIENT
  Sex: Female

DRUGS (3)
  1. MONISTAT 1 DAY TREATMENT [Suspect]
     Route: 067
  2. MONISTAT 1 DAY TREATMENT [Suspect]
     Indication: FUNGAL INFECTION
     Route: 067
  3. WARFARIN SODIUM [Interacting]
     Indication: DRUG USE FOR UNKNOWN INDICATION
     Route: 065

REACTIONS (4)
  - DIZZINESS [None]
  - DRUG INTERACTION [None]
  - LABORATORY TEST ABNORMAL [None]
  - MALAISE [None]
